FAERS Safety Report 5717590-9 (Version None)
Quarter: 2008Q2

REPORT INFORMATION
  Report Type: 
  Country: None (occurrence: None)
  Receive Date: 20080425
  Receipt Date: 20080417
  Transmission Date: 20081010
  Serious: Yes (Other)
  Sender: FDA-Public Use
  Company Number: EG-ABBOTT-08P-048-0448063-00

PATIENT
  Age: 27 Year
  Sex: Male

DRUGS (1)
  1. DEPAKENE [Suspect]
     Indication: EPILEPSY
     Route: 048

REACTIONS (3)
  - EPILEPSY [None]
  - MEDICATION RESIDUE [None]
  - WRONG TECHNIQUE IN DRUG USAGE PROCESS [None]
